FAERS Safety Report 8040307-2 (Version None)
Quarter: 2012Q1

REPORT INFORMATION
  Report Type: 
  Country: None (occurrence: None)
  Receive Date: 20120111
  Receipt Date: 20111228
  Transmission Date: 20120608
  Serious: No
  Sender: FDA-Public Use
  Company Number: US-AMGEN-USASP2011060650

PATIENT
  Sex: Male

DRUGS (2)
  1. METHOTREXATE [Concomitant]
  2. ENBREL [Suspect]
     Indication: PSORIATIC ARTHROPATHY
     Dosage: 25 MG, 2 TIMES/WK

REACTIONS (1)
  - PSORIATIC ARTHROPATHY [None]
